FAERS Safety Report 5178932-9 (Version None)
Quarter: 2006Q4

REPORT INFORMATION
  Report Type: 
  Country: None (occurrence: None)
  Receive Date: 20061213
  Receipt Date: 20061213
  Transmission Date: 20070319
  Serious: Yes (Other)
  Sender: FDA-Public Use
  Company Number: None

PATIENT
  Age: 82 Year
  Sex: Male
  Weight: 67.6 kg

DRUGS (2)
  1. WARFARIN SODIUM [Suspect]
     Dosage: 5MG  QD PO
     Route: 048
  2. SALSALATE [Suspect]
     Dosage: 1500MG  BID PO
     Route: 048

REACTIONS (7)
  - BONE PAIN [None]
  - DIZZINESS [None]
  - FUNGAL INFECTION [None]
  - HYPOGLYCAEMIA [None]
  - INTERNATIONAL NORMALISED RATIO INCREASED [None]
  - MUSCULOSKELETAL CHEST PAIN [None]
  - URINARY TRACT DISORDER [None]
